FAERS Safety Report 23963869 (Version 3)
Quarter: 2024Q2

REPORT INFORMATION
  Report Type: Report from Study
  Country: BE (occurrence: BE)
  Receive Date: 20240611
  Receipt Date: 20240628
  Transmission Date: 20240715
  Serious: Yes (Other)
  Sender: FDA-Public Use
  Company Number: BE-VERTEX PHARMACEUTICALS-2024-009375

PATIENT
  Age: 2 Year
  Sex: Female
  Weight: 14 kg

DRUGS (7)
  1. ELEXACAFTOR\IVACAFTOR\TEZACAFTOR [Suspect]
     Active Substance: ELEXACAFTOR\IVACAFTOR\TEZACAFTOR
     Indication: Cystic fibrosis
     Dosage: 1 SACHET (80 MG ELEXA/ 40 MG TEZA/ 60 MG IVA) AM
     Route: 048
     Dates: start: 20240228
  2. IVACAFTOR [Suspect]
     Active Substance: IVACAFTOR
     Indication: Cystic fibrosis
     Dosage: 1 SACHET (59.5 MG IVA) PM
     Route: 048
     Dates: start: 20240228
  3. PULMOZYME [Concomitant]
     Active Substance: DORNASE ALFA
     Indication: Cystic fibrosis
     Dosage: 1 AMP ONCE DAILY
     Dates: start: 20221201
  4. SODIUM CHLORIDE [Concomitant]
     Active Substance: SODIUM CHLORIDE
     Indication: Cystic fibrosis
     Dosage: 1 AMP ONCE DAILY
     Dates: start: 20210906
  5. AZITHROMYCIN [Concomitant]
     Active Substance: AZITHROMYCIN
     Indication: Cystic fibrosis
     Dosage: 120MG ONCE A DAY 3 DAYS A WEEK
     Route: 048
     Dates: start: 20231228
  6. FLUTICASONE PROPIONATE [Concomitant]
     Active Substance: FLUTICASONE PROPIONATE
     Indication: Bronchial hyperreactivity
     Dosage: 100?G TWICE A DAY
     Dates: start: 20240308
  7. CREON [Concomitant]
     Active Substance: PANCRELIPASE AMYLASE\PANCRELIPASE LIPASE\PANCRELIPASE PROTEASE
     Indication: Cystic fibrosis
     Dosage: 2 CAPSULES AT EACH MEAL
     Dates: start: 20210906

REACTIONS (3)
  - Middle insomnia [Recovering/Resolving]
  - Pharyngitis [Recovered/Resolved]
  - Influenza like illness [Recovered/Resolved]

NARRATIVE: CASE EVENT DATE: 20240401
